FAERS Safety Report 5131542-1 (Version None)
Quarter: 2006Q4

REPORT INFORMATION
  Report Type: 
  Country: None (occurrence: None)
  Receive Date: 20061020
  Receipt Date: 20061010
  Transmission Date: 20070319
  Serious: Yes (Hospitalization)
  Sender: FDA-Public Use
  Company Number: FR-ROCHE-466892

PATIENT
  Age: 35 Year
  Sex: Male

DRUGS (5)
  1. RIVOTRIL [Suspect]
     Route: 048
     Dates: start: 20060828
  2. TERCIAN [Suspect]
     Route: 048
     Dates: start: 20060828
  3. TERALITHE [Concomitant]
     Route: 048
     Dates: start: 20051215
  4. DEPAKOTE [Concomitant]
     Route: 048
     Dates: start: 20051215
  5. ZYPREXA [Concomitant]
     Route: 048
     Dates: start: 20051215

REACTIONS (4)
  - PYREXIA [None]
  - RENAL FAILURE ACUTE [None]
  - RHABDOMYOLYSIS [None]
  - SOMNOLENCE [None]
